FAERS Safety Report 7291624-5 (Version None)
Quarter: 2011Q1

REPORT INFORMATION
  Report Type: 
  Country: None (occurrence: None)
  Receive Date: 20110209
  Receipt Date: 20110209
  Transmission Date: 20110831
  Serious: Yes (Other)
  Sender: FDA-Public Use
  Company Number: None

PATIENT
  Sex: Male
  Weight: 81.6475 kg

DRUGS (1)
  1. PROPECIA [Suspect]
     Indication: ALOPECIA
     Dosage: 1 MG DAILY PO
     Route: 048
     Dates: start: 20050315, end: 20101015

REACTIONS (3)
  - NO THERAPEUTIC RESPONSE [None]
  - ERECTILE DYSFUNCTION [None]
  - LIBIDO DECREASED [None]
